FAERS Safety Report 5441667-9 (Version None)
Quarter: 2007Q3

REPORT INFORMATION
  Report Type: 
  Country: None (occurrence: None)
  Receive Date: 20070904
  Receipt Date: 20070829
  Transmission Date: 20080115
  Serious: Yes (Other)
  Sender: FDA-Public Use
  Company Number: GB-BAYER-200710621BNE

PATIENT
  Age: 5 Month
  Sex: Male

DRUGS (7)
  1. CIPROXIN [Suspect]
     Indication: ANTIBIOTIC PROPHYLAXIS
     Route: 048
     Dates: start: 20070504, end: 20070522
  2. KETOVITE LIQUID AND TABLETS [Concomitant]
  3. KETOVITE LIQUID AND TABLETS [Concomitant]
  4. ALFACALCIDOL DROPS [Concomitant]
  5. URSODEOXYCHOLIC ACID SUSPENSION [Concomitant]
  6. SODIUM DIHYDROGEN PHOSPHATE ORAL SOLUTION [Concomitant]
     Route: 048
  7. RANITIDINE SUSPENSION [Concomitant]

REACTIONS (2)
  - CHOLESTASIS [None]
  - LIVER FUNCTION TEST ABNORMAL [None]
